FAERS Safety Report 6153922-8 (Version None)
Quarter: 2009Q2

REPORT INFORMATION
  Report Type: 
  Country: None (occurrence: None)
  Receive Date: 20090410
  Receipt Date: 20090330
  Transmission Date: 20091009
  Serious: Yes (Death)
  Sender: FDA-Public Use
  Company Number: 2009AP001372

PATIENT
  Age: 42 Year
  Sex: Male

DRUGS (5)
  1. LITHIUM CARBONATE CAP [Suspect]
  2. ZYPREXA [Suspect]
  3. PAXIL [Suspect]
  4. BUPROPION HCL [Suspect]
  5. CLONAZEPAM [Suspect]

REACTIONS (5)
  - AGGRESSION [None]
  - PSYCHOTIC BEHAVIOUR [None]
  - SUBARACHNOID HAEMORRHAGE [None]
  - UNRESPONSIVE TO STIMULI [None]
  - VISCERAL CONGESTION [None]
